FAERS Safety Report 5980201-1 (Version None)
Quarter: 2008Q4

REPORT INFORMATION
  Report Type: 
  Country: None (occurrence: None)
  Receive Date: 20081202
  Receipt Date: 20081202
  Transmission Date: 20090506
  Serious: Yes (Life-Threatening, Other)
  Sender: FDA-Public Use
  Company Number: None

PATIENT
  Age: 15 Year
  Sex: Male

DRUGS (1)
  1. LIDOCAINE [Suspect]
     Indication: SKIN DISORDER

REACTIONS (7)
  - CONCUSSION [None]
  - CONVULSION [None]
  - HEADACHE [None]
  - PALPITATIONS [None]
  - SYNCOPE [None]
  - VEIN DISORDER [None]
  - VOMITING [None]
